FAERS Safety Report 15017861 (Version 1)
Quarter: 2018Q2

REPORT INFORMATION
  Report Type: Spontaneous
  Country: US (occurrence: US)
  Receive Date: 20180615
  Receipt Date: 20180615
  Transmission Date: 20180711
  Serious: Yes (Other)
  Sender: FDA-Public Use
  Company Number: US-PFIZER INC-2018238939

PATIENT
  Age: 42 Year
  Sex: Female
  Weight: 90.72 kg

DRUGS (1)
  1. DEPO-PROVERA [Suspect]
     Active Substance: MEDROXYPROGESTERONE ACETATE
     Indication: CONTRACEPTION
     Dosage: UNK

REACTIONS (10)
  - Urinary retention [Unknown]
  - Schizophrenia [Unknown]
  - Aggression [Unknown]
  - Hypertrichosis [Not Recovered/Not Resolved]
  - Nervousness [Unknown]
  - Emotional disorder [Unknown]
  - Acne [Not Recovered/Not Resolved]
  - Depression [Unknown]
  - Condition aggravated [Unknown]
  - Weight increased [Unknown]

NARRATIVE: CASE EVENT DATE: 2016
